FAERS Safety Report 24087073 (Version 1)
Quarter: 2024Q3

REPORT INFORMATION
  Report Type: Spontaneous
  Country: GB (occurrence: GB)
  Receive Date: 20240713
  Receipt Date: 20240713
  Transmission Date: 20241016
  Serious: Yes (Hospitalization, Other)
  Sender: BAXTER
  Company Number: None

PATIENT
  Sex: Female

DRUGS (1)
  1. FUROSEMIDE [Suspect]
     Active Substance: FUROSEMIDE
     Route: 065

REACTIONS (1)
  - Acute kidney injury [Recovered/Resolved]
